FAERS Safety Report 7691729-0 (Version None)
Quarter: 2011Q3

REPORT INFORMATION
  Report Type: 
  Country: None (occurrence: None)
  Receive Date: 20110818
  Receipt Date: 20110810
  Transmission Date: 20111222
  Serious: Yes (Hospitalization)
  Sender: FDA-Public Use
  Company Number: US-GLAXOSMITHKLINE-A0941243A

PATIENT
  Age: 48 Year
  Sex: Male
  Weight: 51.6 kg

DRUGS (1)
  1. PAZOPANIB [Suspect]
     Indication: THYROID CANCER
     Dosage: 800MG PER DAY
     Route: 048
     Dates: start: 20100908

REACTIONS (3)
  - ANGINA PECTORIS [None]
  - PAIN [None]
  - AGITATION [None]
